FAERS Safety Report 19085865 (Version 5)
Quarter: 2021Q4

REPORT INFORMATION
  Report Type: Report from Study
  Country: US (occurrence: US)
  Receive Date: 20210402
  Receipt Date: 20211102
  Transmission Date: 20220303
  Serious: No
  Sender: FDA-Public Use
  Company Number: US-ACADIA PHARMACEUTICALS INC.-ACA-2021-PIM-000939

PATIENT
  Age: 88 Year
  Sex: Male
  Weight: 62 kg

DRUGS (13)
  1. NUPLAZID [Suspect]
     Active Substance: PIMAVANSERIN TARTRATE
     Indication: Parkinson^s disease
     Dosage: 34 MILLIGRAM, QD
     Route: 048
     Dates: start: 20201020
  2. NUPLAZID [Suspect]
     Active Substance: PIMAVANSERIN TARTRATE
     Dosage: 34 MILLIGRAM, QD
     Route: 048
     Dates: start: 20201112
  3. CARBIDOPA\LEVODOPA [Concomitant]
     Active Substance: CARBIDOPA\LEVODOPA
     Dosage: 25/100 MG 2 TABLETS, TID
     Route: 048
  4. CARBIDOPA\LEVODOPA [Concomitant]
     Active Substance: CARBIDOPA\LEVODOPA
     Dosage: 25/100 MG 2 TABLETS, TID
     Route: 048
     Dates: start: 20180710
  5. DULCOLAX (BISACODYL) [Concomitant]
     Active Substance: BISACODYL
     Dosage: 10 MG AS NEEDED
     Route: 054
  6. DULCOLAX (BISACODYL) [Concomitant]
     Active Substance: BISACODYL
     Dosage: 5 MG EC
  7. ESOMEPRAZOLE MAGNESIUM [Concomitant]
     Active Substance: ESOMEPRAZOLE MAGNESIUM
     Dosage: 49.3 MG
     Route: 048
  8. NAMENDA [Concomitant]
     Active Substance: MEMANTINE HYDROCHLORIDE
     Dosage: 10 MILLIGRAM, BID
     Dates: start: 20191119
  9. MIRALAX [Concomitant]
     Active Substance: POLYETHYLENE GLYCOL 3350
     Dosage: 3350 NF
  10. MAGNESIUM [Concomitant]
     Active Substance: MAGNESIUM
     Dosage: 400 MILLIGRAM 2 QD
  11. SODIUM PICOSULFATE [Concomitant]
     Active Substance: SODIUM PICOSULFATE
     Dosage: 5 MILLIGRAM
  12. ESOMEPRAZOLE [Concomitant]
     Active Substance: ESOMEPRAZOLE
     Dosage: 49.3 MG
  13. MEMANTINE [Concomitant]
     Active Substance: MEMANTINE
     Dosage: 5 MILLIGRAM

REACTIONS (6)
  - Delusion [Not Recovered/Not Resolved]
  - Delusion [Unknown]
  - Back pain [Unknown]
  - Condition aggravated [Recovered/Resolved]
  - Fall [Unknown]
  - Hallucination [Not Recovered/Not Resolved]

NARRATIVE: CASE EVENT DATE: 20201128
